FAERS Safety Report 10313216 (Version 1)
Quarter: 2014Q3

REPORT INFORMATION
  Report Type: Spontaneous
  Country: US (occurrence: None)
  Receive Date: 20140716
  Receipt Date: 20140716
  Transmission Date: 20150326
  Serious: Yes (Death, Hospitalization)
  Sender: FDA-Public Use
  Company Number: 2014CVI00014

PATIENT
  Age: 27 Year
  Sex: Female
  Weight: 56.7 kg

DRUGS (5)
  1. THIOPENTONE SODIUM [Concomitant]
     Active Substance: THIOPENTAL SODIUM
  2. FENTANYL CITRATE. [Concomitant]
     Active Substance: FENTANYL CITRATE
  3. CEFUROXIME (CEFUROXIME) [Suspect]
     Active Substance: CEFUROXIME
     Indication: PROPHYLAXIS
     Route: 042
     Dates: start: 19880829, end: 19880829
  4. ATROPINE [Concomitant]
     Active Substance: ATROPINE
  5. HALOTHANE. [Concomitant]
     Active Substance: HALOTHANE

REACTIONS (3)
  - Anaphylactic shock [None]
  - Coma [None]
  - Cardiac arrest [None]

NARRATIVE: CASE EVENT DATE: 19880829
